FAERS Safety Report 21393013 (Version 1)
Quarter: 2022Q3

REPORT INFORMATION
  Report Type: Report from Study
  Country: US (occurrence: US)
  Receive Date: 20220929
  Receipt Date: 20220929
  Transmission Date: 20221027
  Serious: Yes (Other)
  Sender: FDA-Public Use
  Company Number: US-ABBVIE-4131784

PATIENT
  Sex: Male

DRUGS (5)
  1. HUMIRA [Suspect]
     Active Substance: ADALIMUMAB
     Indication: Psoriatic arthropathy
     Route: 058
  2. HUMIRA [Suspect]
     Active Substance: ADALIMUMAB
     Indication: Ankylosing spondylitis
  3. Pfizer/BioNTech [Concomitant]
     Indication: COVID-19 immunisation
     Dosage: FIRST DOSE FREQUENCY 1 IN ONCE
     Route: 030
     Dates: start: 20210521, end: 20210521
  4. Pfizer/BioNTech [Concomitant]
     Indication: COVID-19 immunisation
     Dosage: SECOND DOSE FREQUENCY 1 IN ONCE
     Route: 030
     Dates: start: 20210607, end: 20210607
  5. Pfizer/BioNTech [Concomitant]
     Indication: COVID-19 immunisation
     Dosage: THIRD DOSE FREQUENCY 1 IN ONCE
     Route: 030
     Dates: start: 20220111, end: 20220111

REACTIONS (4)
  - Diabetic coma [Unknown]
  - Hypoaesthesia oral [Unknown]
  - COVID-19 [Unknown]
  - Pyrexia [Unknown]
